FAERS Safety Report 7106533-1 (Version None)
Quarter: 2010Q4

REPORT INFORMATION
  Report Type: 
  Country: None (occurrence: None)
  Receive Date: 20101116
  Receipt Date: 20101112
  Transmission Date: 20110411
  Serious: Yes (Other)
  Sender: FDA-Public Use
  Company Number: BR-PFIZER INC-2010142392

PATIENT
  Age: 38 Year
  Sex: Female
  Weight: 72 kg

DRUGS (5)
  1. GEODON [Suspect]
     Indication: BIPOLAR DISORDER
     Dosage: UNK
     Route: 048
     Dates: start: 20050101
  2. GEODON [Suspect]
     Indication: SCHIZOPHRENIA
  3. NEOSALDINA [Concomitant]
     Indication: MIGRAINE
     Dosage: UNK
  4. DIPYRONE [Concomitant]
     Indication: MIGRAINE
  5. PANTOPRAZOLE [Concomitant]
     Indication: GASTRITIS
     Dosage: UNK
     Dates: start: 20000101

REACTIONS (10)
  - CONSTIPATION [None]
  - DRY EYE [None]
  - FEELING ABNORMAL [None]
  - INNER EAR DISORDER [None]
  - MICTURITION DISORDER [None]
  - MUCOUS MEMBRANE DISORDER [None]
  - NASAL POLYPS [None]
  - NAUSEA [None]
  - VISION BLURRED [None]
  - WEIGHT DECREASED [None]
